FAERS Safety Report 6573420-7 (Version None)
Quarter: 2010Q1

REPORT INFORMATION
  Report Type: 
  Country: None (occurrence: None)
  Receive Date: 20100204
  Receipt Date: 20100204
  Transmission Date: 20100710
  Serious: Yes (Death)
  Sender: FDA-Public Use
  Company Number: None

PATIENT
  Age: 74 Year
  Sex: Male
  Weight: 72.5755 kg

DRUGS (1)
  1. ANDROGEL [Suspect]
     Indication: HORMONE THERAPY
     Dosage: 4 PUMPS DAILY AM PUMP SPRAY
     Dates: start: 20071201, end: 20090801

REACTIONS (1)
  - THYROID CANCER [None]
